FAERS Safety Report 9404338 (Version 1)
Quarter: 2013Q3

REPORT INFORMATION
  Report Type: Spontaneous
  Country: US (occurrence: None)
  Receive Date: 20130711
  Receipt Date: 20130711
  Transmission Date: 20140515
  Serious: Yes (Hospitalization)
  Sender: FDA-Public Use
  Company Number: UTC-035007

PATIENT
  Age: 59 Year
  Sex: Male
  Weight: 76.4 kg

DRUGS (3)
  1. REMODULIN [Suspect]
     Indication: PULMONARY ARTERIAL HYPERTENSION
     Dosage: (0.037 UG/KG, 1 IN 1 MIN)
     Route: 058
     Dates: start: 20020614
  2. LETAIRIS (AMBRISENTAN) (UNKNOWN) [Concomitant]
  3. COUMADIN (WARFARIN SODIUM) (UNKNOWN) [Concomitant]

REACTIONS (1)
  - Infusion site infection [None]
